FAERS Safety Report 23196618 (Version 1)
Quarter: 2023Q4

REPORT INFORMATION
  Report Type: Spontaneous
  Country: GB (occurrence: GB)
  Receive Date: 20231117
  Receipt Date: 20231117
  Transmission Date: 20240110
  Serious: Yes (Other)
  Sender: FDA-Public Use
  Company Number: None

PATIENT

DRUGS (2)
  1. NAPROXEN [Suspect]
     Active Substance: NAPROXEN
     Indication: Ligament sprain
     Dosage: 500 MILLIGRAM, BID
     Route: 065
     Dates: start: 20231109, end: 20231109
  2. LANSOPRAZOLE [Suspect]
     Active Substance: LANSOPRAZOLE
     Indication: Ligament sprain
     Dosage: 30 MILLIGRAM, QD
     Route: 065
     Dates: start: 20231109, end: 20231109

REACTIONS (3)
  - Malaise [Not Recovered/Not Resolved]
  - Abdominal pain upper [Not Recovered/Not Resolved]
  - Illness [Not Recovered/Not Resolved]

NARRATIVE: CASE EVENT DATE: 20231109
